FAERS Safety Report 4710654-8 (Version None)
Quarter: 2005Q3

REPORT INFORMATION
  Report Type: 
  Country: None (occurrence: None)
  Receive Date: 20050707
  Receipt Date: 20050616
  Transmission Date: 20060218
  Serious: Yes (Hospitalization)
  Sender: FDA-Public Use
  Company Number: FR_050506443

PATIENT
  Age: 73 Year
  Sex: Female
  Weight: 95 kg

DRUGS (8)
  1. FORSTEO (TERIPARATIDE) [Suspect]
     Indication: OSTEOPOROSIS
     Dosage: 20 UG DAY
     Dates: start: 20050124, end: 20050513
  2. DIAMICRON (GLICLAZIDE) [Concomitant]
  3. NICARDIPINE HCL [Concomitant]
  4. COZAAR [Concomitant]
  5. FENOFIBRATE [Concomitant]
  6. ALLOPURINOL [Concomitant]
  7. OMEPRAZOLE [Concomitant]
  8. LASILIX (FUROSEMIDE/00032601/) [Concomitant]

REACTIONS (3)
  - DYSPNOEA [None]
  - EXTRASYSTOLES [None]
  - PULMONARY EMBOLISM [None]
